FAERS Safety Report 8068940-2 (Version None)
Quarter: 2012Q1

REPORT INFORMATION
  Report Type: 
  Country: None (occurrence: None)
  Receive Date: 20120118
  Receipt Date: 20120103
  Transmission Date: 20120608
  Serious: Yes (Life-Threatening)
  Sender: FDA-Public Use
  Company Number: B0773865A

PATIENT
  Sex: Male

DRUGS (6)
  1. DIGOXIN [Suspect]
     Indication: ATRIAL FIBRILLATION
     Dosage: ORAL
     Route: 048
     Dates: start: 20111001, end: 20111226
  2. CANRENOATE POTASSIUM [Concomitant]
  3. FUROSEMIDE [Concomitant]
  4. PHENFORMIN HCL SRC [Concomitant]
  5. ASPIRIN [Concomitant]
  6. AMIODARONE HCL [Concomitant]

REACTIONS (3)
  - ATRIOVENTRICULAR BLOCK [None]
  - TOXICITY TO VARIOUS AGENTS [None]
  - CARDIOACTIVE DRUG LEVEL ABOVE THERAPEUTIC [None]
